FAERS Safety Report 23099827 (Version 1)
Quarter: 2023Q4

REPORT INFORMATION
  Report Type: Spontaneous
  Country: US (occurrence: None)
  Receive Date: 20231020
  Receipt Date: 20231020
  Transmission Date: 20240109
  Serious: Yes (Hospitalization)
  Sender: FDA-Public Use
  Company Number: None

PATIENT
  Age: 87 Year
  Sex: Male

DRUGS (1)
  1. EMPAGLIFLOZIN [Suspect]
     Active Substance: EMPAGLIFLOZIN
     Dosage: FREQUENCY : DAILY;?
     Route: 048
     Dates: start: 20230304, end: 20230310

REACTIONS (4)
  - Kidney infection [None]
  - Hypovolaemia [None]
  - Atrial fibrillation [None]
  - Therapy cessation [None]

NARRATIVE: CASE EVENT DATE: 20230310
